FAERS Safety Report 6574890-0 (Version None)
Quarter: 2010Q1

REPORT INFORMATION
  Report Type: 
  Country: None (occurrence: None)
  Receive Date: 20100209
  Receipt Date: 20100204
  Transmission Date: 20100710
  Serious: Yes (Death, Other)
  Sender: FDA-Public Use
  Company Number: PHEH2009US18902

PATIENT
  Sex: Female

DRUGS (5)
  1. EXJADE [Suspect]
     Indication: IRON OVERLOAD
     Dosage: 250 MG, QD
     Route: 048
     Dates: start: 20081216
  2. AMIODARONE HCL [Concomitant]
     Dosage: 400 MG, BID
     Route: 048
     Dates: start: 20081001
  3. METOPROLOL TARTRATE [Concomitant]
     Dosage: 50 MG, BID
     Route: 048
     Dates: start: 20081001
  4. PREMARIN [Concomitant]
     Dosage: 0.3 MG, QD
     Route: 048
  5. SYNTHROID [Concomitant]
     Dosage: 100 UG, QD
     Route: 048

REACTIONS (4)
  - ATRIAL FIBRILLATION [None]
  - CARDIAC DISORDER [None]
  - DEATH [None]
  - MYELODYSPLASTIC SYNDROME [None]
